FAERS Safety Report 8168429-6 (Version None)
Quarter: 2012Q1

REPORT INFORMATION
  Report Type: 
  Country: None (occurrence: None)
  Receive Date: 20120227
  Receipt Date: 20120217
  Transmission Date: 20120608
  Serious: Yes (Disabling)
  Sender: FDA-Public Use
  Company Number: CA-CELGENEUS-028-21880-11110931

PATIENT
  Sex: Male

DRUGS (9)
  1. REVLIMID [Suspect]
     Dosage: 5 MILLIGRAM
     Route: 048
     Dates: start: 20111026
  2. ZOPICLONE [Concomitant]
     Route: 065
  3. ARANESP [Concomitant]
     Route: 065
  4. SYNTHROID [Concomitant]
     Route: 065
  5. OXYCODONE HCL [Concomitant]
     Route: 065
  6. REVLIMID [Suspect]
     Indication: MULTIPLE MYELOMA
  7. NAPROSYN [Concomitant]
     Route: 065
  8. EXJADE [Concomitant]
     Route: 065
  9. PROSCAR [Concomitant]
     Route: 065

REACTIONS (8)
  - JOINT SWELLING [None]
  - FULL BLOOD COUNT DECREASED [None]
  - PAIN IN EXTREMITY [None]
  - ABDOMINAL PAIN LOWER [None]
  - URTICARIA [None]
  - RASH [None]
  - PRURITUS GENERALISED [None]
  - OEDEMA PERIPHERAL [None]
